FAERS Safety Report 5711086-6 (Version None)
Quarter: 2008Q2

REPORT INFORMATION
  Report Type: 
  Country: None (occurrence: None)
  Receive Date: 20080421
  Receipt Date: 20080410
  Transmission Date: 20081010
  Serious: Yes (Death, Hospitalization, Other)
  Sender: FDA-Public Use
  Company Number: CZ-JNJFOC-20080403154

PATIENT
  Sex: Male

DRUGS (16)
  1. REMICADE [Suspect]
     Indication: ANKYLOSING SPONDYLITIS
     Route: 042
  2. REMICADE [Suspect]
     Indication: CROHN'S DISEASE
     Route: 042
  3. FERRONAT [Concomitant]
  4. PENTASA [Concomitant]
  5. HELICID [Concomitant]
  6. ENTOCORD [Concomitant]
  7. VEROSPIRON [Concomitant]
  8. OSTEOCARE [Concomitant]
  9. FURON [Concomitant]
  10. PYRIDOXINE [Concomitant]
  11. PRESTARIUM [Concomitant]
  12. ENOXAPARIN SODIUM [Concomitant]
  13. ACTRAPID [Concomitant]
  14. INSULATARD [Concomitant]
  15. ATORVASTATIN [Concomitant]
  16. SOTALOL HCL [Concomitant]

REACTIONS (2)
  - MULTI-ORGAN FAILURE [None]
  - SEPSIS [None]
